FAERS Safety Report 11990505 (Version 3)
Quarter: 2018Q1

REPORT INFORMATION
  Report Type: Spontaneous
  Country: CO (occurrence: CO)
  Receive Date: 20160202
  Receipt Date: 20180125
  Transmission Date: 20180508
  Serious: Yes (Hospitalization, Other)
  Sender: FDA-Public Use
  Company Number: CO-PFIZER INC-2016059323

PATIENT
  Age: 10 Year
  Sex: Male

DRUGS (1)
  1. GENOTROPIN [Suspect]
     Active Substance: SOMATROPIN
     Indication: TUBEROUS SCLEROSIS COMPLEX
     Dosage: 1.5 MG, DAILY
     Route: 058
     Dates: start: 201509, end: 2016

REACTIONS (3)
  - Intentional product misuse [Unknown]
  - Product use in unapproved indication [Unknown]
  - Seizure [Recovered/Resolved]

NARRATIVE: CASE EVENT DATE: 201509
